FAERS Safety Report 10251915 (Version 1)
Quarter: 2014Q2

REPORT INFORMATION
  Report Type: Spontaneous
  Country: US (occurrence: US)
  Receive Date: 20140623
  Receipt Date: 20140623
  Transmission Date: 20141212
  Serious: Yes (Other)
  Sender: FDA-Public Use
  Company Number: US-AMGEN INC.-USASP2014046312

PATIENT
  Age: 45 Year
  Sex: Female
  Weight: 117.91 kg

DRUGS (19)
  1. ENBREL [Suspect]
     Indication: PRODUCT USED FOR UNKNOWN INDICATION
     Dosage: 50 MG, QWK
     Route: 058
     Dates: start: 2007
  2. CENTRUM                            /02217401/ [Concomitant]
     Dosage: UNK
  3. JANUVIA [Concomitant]
     Dosage: 25 MG, UNK
  4. NEXPLANON [Concomitant]
     Dosage: 68 MG, UNK
  5. METHOTREXATE [Concomitant]
     Dosage: 2.5 MG, UNK
  6. NAPROXEN [Concomitant]
     Dosage: 250 MG, UNK
  7. GEMFIBROZIL [Concomitant]
     Dosage: 600 MG, UNK
  8. METFORMIN [Concomitant]
     Dosage: 500 MG, UNK
  9. LISINOPRIL [Concomitant]
     Dosage: 2.5 MG, UNK
  10. FOLIC ACID [Concomitant]
     Dosage: UNK
  11. GABAPENTIN [Concomitant]
     Dosage: 300 MG, UNK
  12. VITAMIN C                          /00008001/ [Concomitant]
     Dosage: 500 MG, UNK
  13. LEVOTHYROXIN [Concomitant]
     Dosage: 25 MUG, UNK
  14. BIOTIN [Concomitant]
     Dosage: 400 MUG, UNK
  15. CLARITIN                           /00413701/ [Concomitant]
     Dosage: 10 MG, UNK
  16. ASPIRIN BUFFERED [Concomitant]
     Dosage: 325 MG, UNK
  17. IRON [Concomitant]
     Dosage: 325 MG, UNK
  18. GLIPIZIDE XL [Concomitant]
     Dosage: 2.5 MG, UNK
  19. PROBIOTIC                          /06395501/ [Concomitant]
     Dosage: UNK

REACTIONS (3)
  - Infection [Unknown]
  - Back pain [Unknown]
  - Drug hypersensitivity [Unknown]
